FAERS Safety Report 9191575 (Version 1)
Quarter: 2013Q1

REPORT INFORMATION
  Report Type: Spontaneous
  Country: NL (occurrence: NL)
  Receive Date: 20130326
  Receipt Date: 20130326
  Transmission Date: 20140127
  Serious: Yes (Other)
  Sender: FDA-Public Use
  Company Number: NL-PFIZER INC-2013093961

PATIENT
  Age: 89 Year
  Sex: Female

DRUGS (8)
  1. CLINDAMYCIN HCL [Suspect]
     Dosage: 600 MG, 3X/DAY
     Dates: start: 20130305
  2. LISINOPRIL [Concomitant]
     Dosage: 20 MG, 1X/DAY
     Dates: start: 20110106
  3. OMEPRAZOL [Concomitant]
     Dosage: 20 MG, 1X/DAY
     Dates: start: 20111106
  4. HUMALOG [Concomitant]
     Dosage: UNK
  5. INSULIN DETEMIR [Concomitant]
     Dosage: UNK
  6. ACETYLSALICYLIC ACID [Concomitant]
     Dosage: 80 MG, 1X/DAY
  7. HYDROCHLOROTHIAZID [Concomitant]
     Dosage: 25 MG, 1X/DAY
  8. SIMVASTATIN [Concomitant]
     Dosage: 40 MG, 1X/DAY

REACTIONS (4)
  - Swollen tongue [Unknown]
  - Lip swelling [Unknown]
  - Burning sensation mucosal [Unknown]
  - Pain [Unknown]
